FAERS Safety Report 7542184-2 (Version None)
Quarter: 2011Q2

REPORT INFORMATION
  Report Type: 
  Country: None (occurrence: None)
  Receive Date: 20110524
  Receipt Date: 20110223
  Transmission Date: 20111010
  Serious: No
  Sender: FDA-Public Use
  Company Number: 028208

PATIENT
  Sex: Female
  Weight: 72.5755 kg

DRUGS (7)
  1. IMURAN [Concomitant]
  2. CIMZIA [Suspect]
     Indication: CROHN'S DISEASE
     Dosage: (2 SHOTS SUBCUTANEOUS), (1 SHOT ONLY SUBCUTANEOUS), (2 SHOTS SUBCUTANEOUS)
     Route: 058
     Dates: start: 20110214, end: 20110214
  3. CIMZIA [Suspect]
     Indication: PUSTULAR PSORIASIS
     Dosage: (2 SHOTS SUBCUTANEOUS), (1 SHOT ONLY SUBCUTANEOUS), (2 SHOTS SUBCUTANEOUS)
     Route: 058
     Dates: start: 20110214, end: 20110214
  4. CIMZIA [Suspect]
     Indication: ARTHRITIS
     Dosage: (2 SHOTS SUBCUTANEOUS), (1 SHOT ONLY SUBCUTANEOUS), (2 SHOTS SUBCUTANEOUS)
     Route: 058
     Dates: start: 20110214, end: 20110214
  5. CIMZIA [Suspect]
     Indication: CROHN'S DISEASE
     Dosage: (2 SHOTS SUBCUTANEOUS), (1 SHOT ONLY SUBCUTANEOUS), (2 SHOTS SUBCUTANEOUS)
     Route: 058
     Dates: start: 20101101, end: 20110101
  6. CIMZIA [Suspect]
     Indication: PUSTULAR PSORIASIS
     Dosage: (2 SHOTS SUBCUTANEOUS), (1 SHOT ONLY SUBCUTANEOUS), (2 SHOTS SUBCUTANEOUS)
     Route: 058
     Dates: start: 20101101, end: 20110101
  7. CIMZIA [Suspect]
     Indication: ARTHRITIS
     Dosage: (2 SHOTS SUBCUTANEOUS), (1 SHOT ONLY SUBCUTANEOUS), (2 SHOTS SUBCUTANEOUS)
     Route: 058
     Dates: start: 20101101, end: 20110101

REACTIONS (3)
  - FATIGUE [None]
  - JOINT SWELLING [None]
  - FREQUENT BOWEL MOVEMENTS [None]
